FAERS Safety Report 15306874 (Version 1)
Quarter: 2018Q3

REPORT INFORMATION
  Report Type: Report from Study
  Country: US (occurrence: US)
  Receive Date: 20180822
  Receipt Date: 20180822
  Transmission Date: 20181010
  Serious: Yes (Hospitalization, Other)
  Sender: FDA-Public Use
  Company Number: US-ROCHE-2151573

PATIENT
  Age: 69 Year
  Sex: Male
  Weight: 104.42 kg

DRUGS (2)
  1. OCREVUS [Suspect]
     Active Substance: OCRELIZUMAB
     Route: 042
     Dates: start: 201805, end: 201806
  2. OCREVUS [Suspect]
     Active Substance: OCRELIZUMAB
     Indication: MULTIPLE SCLEROSIS
     Dosage: 300 MG ON DAY 1, 300 MG DAY 15 EVERY 6 MONTHS
     Route: 042
     Dates: start: 201709

REACTIONS (17)
  - Laceration [Unknown]
  - Therapeutic response decreased [Unknown]
  - Lower limb fracture [Unknown]
  - Ill-defined disorder [Unknown]
  - Eye disorder [Unknown]
  - Tremor [Unknown]
  - Dysphagia [Unknown]
  - Eye contusion [Unknown]
  - Cerebral atrophy [Unknown]
  - Asthenia [Unknown]
  - Musculoskeletal stiffness [Unknown]
  - Pneumonia [Unknown]
  - Seizure [Recovered/Resolved]
  - Fall [Unknown]
  - Contusion [Unknown]
  - Speech disorder [Unknown]
  - Cerebrovascular accident [Unknown]

NARRATIVE: CASE EVENT DATE: 201803
